FAERS Safety Report 19106069 (Version 1)
Quarter: 2021Q2

REPORT INFORMATION
  Report Type: Report from Study
  Country: US (occurrence: US)
  Receive Date: 20210408
  Receipt Date: 20210408
  Transmission Date: 20210717
  Serious: Yes (Other)
  Sender: FDA-Public Use
  Company Number: US-BIOGEN-2021BI00990460

PATIENT
  Age: 61 Year
  Sex: Female

DRUGS (3)
  1. VUMERITY [Suspect]
     Active Substance: DIROXIMEL FUMARATE
     Indication: MULTIPLE SCLEROSIS
     Route: 048
     Dates: start: 20201028
  2. HUMIRA [Concomitant]
     Active Substance: ADALIMUMAB
     Indication: PUSTULAR PSORIASIS
     Route: 065
  3. TECFIDERA [Suspect]
     Active Substance: DIMETHYL FUMARATE
     Indication: MULTIPLE SCLEROSIS
     Route: 065
     Dates: start: 20160923

REACTIONS (13)
  - Renal impairment [Unknown]
  - Intervertebral disc protrusion [Unknown]
  - Memory impairment [Not Recovered/Not Resolved]
  - Osteoporosis [Not Recovered/Not Resolved]
  - Visual impairment [Not Recovered/Not Resolved]
  - Balance disorder [Not Recovered/Not Resolved]
  - Flushing [Unknown]
  - Stomatitis necrotising [Unknown]
  - Brain injury [Unknown]
  - Pain [Unknown]
  - Tooth fracture [Unknown]
  - Gingival cancer [Unknown]
  - Cataract [Unknown]

NARRATIVE: CASE EVENT DATE: 2020
